FAERS Safety Report 9169386 (Version 1)
Quarter: 2013Q1

REPORT INFORMATION
  Report Type: Spontaneous
  Country: US (occurrence: US)
  Receive Date: 20130318
  Receipt Date: 20130318
  Transmission Date: 20140127
  Serious: No
  Sender: FDA-Public Use
  Company Number: US-ASTRAZENECA-2013SE14107

PATIENT
  Age: 77 Year
  Sex: Female
  Weight: 48.5 kg

DRUGS (6)
  1. PULMICORT RESPULES [Suspect]
     Indication: LUNG INFECTION
     Dosage: 2  DAILY
     Route: 055
     Dates: start: 20130210
  2. TOPROL  XL [Suspect]
     Indication: CARDIAC INFECTION
     Route: 048
     Dates: start: 2004
  3. CRESTOR [Suspect]
     Route: 048
     Dates: start: 2004
  4. PREDNISONE [Concomitant]
     Indication: INFECTION
     Route: 048
     Dates: start: 20130215
  5. PROTONIX [Concomitant]
     Indication: GASTRIC DISORDER
     Route: 048
     Dates: start: 20130215
  6. DIOVAN [Concomitant]
     Indication: CARDIAC INFECTION
     Route: 048
     Dates: start: 2004

REACTIONS (4)
  - Lung infection [Unknown]
  - Dysphonia [Unknown]
  - Oropharyngeal pain [Unknown]
  - Off label use [Unknown]
